FAERS Safety Report 6689019-8 (Version None)
Quarter: 2010Q2

REPORT INFORMATION
  Report Type: 
  Country: None (occurrence: None)
  Receive Date: 20100420
  Receipt Date: 20100412
  Transmission Date: 20101027
  Serious: Yes (Hospitalization)
  Sender: FDA-Public Use
  Company Number: PHHY2010CH22428

PATIENT
  Age: 76 Year
  Sex: Female

DRUGS (4)
  1. AREDIA [Suspect]
     Indication: OSTEOPOROSIS POSTMENOPAUSAL
     Dosage: 30 MG/EVERY 3 MONTHS
     Route: 042
     Dates: start: 20040101, end: 20060401
  2. AREDIA [Suspect]
     Dosage: UNK
     Dates: end: 20100101
  3. BONIVA [Suspect]
     Indication: OSTEOPOROSIS POSTMENOPAUSAL
     Dosage: 150 MG, QMO
     Route: 048
     Dates: start: 20060101, end: 20100101
  4. ATACAND [Concomitant]
     Indication: HYPERTENSION
     Dosage: UNK

REACTIONS (3)
  - FALL [None]
  - LOWER LIMB FRACTURE [None]
  - SURGERY [None]
